FAERS Safety Report 5285132-0 (Version None)
Quarter: 2007Q1

REPORT INFORMATION
  Report Type: 
  Country: None (occurrence: None)
  Receive Date: 20061226
  Receipt Date: 20060712
  Transmission Date: 20070707
  Serious: Yes (Life-Threatening, Hospitalization)
  Sender: FDA-Public Use
  Company Number: WAES 0607USA02501

PATIENT
  Age: 45 Year
  Sex: Male

DRUGS (3)
  1. ZETIA [Suspect]
     Indication: HYPERCHOLESTEROLAEMIA
     Dosage: 10 MG/DAILY/PO
     Route: 048
     Dates: start: 20050101
  2. HYDRODIURIL [Concomitant]
  3. METOPROLOL SUCCINATE [Concomitant]

REACTIONS (1)
  - PANCREATITIS ACUTE [None]
